FAERS Safety Report 8016514-1 (Version None)
Quarter: 2011Q4

REPORT INFORMATION
  Report Type: 
  Country: None (occurrence: None)
  Receive Date: 20111230
  Receipt Date: 20111228
  Transmission Date: 20120403
  Serious: Yes (Hospitalization)
  Sender: FDA-Public Use
  Company Number: US-ROCHE-797625

PATIENT
  Age: 62 Year
  Sex: Female
  Weight: 55.7 kg

DRUGS (4)
  1. PACLITAXEL [Suspect]
     Dosage: 60 MG/M2 INTRAPERITONEAL ON DAY 8
     Route: 042
  2. AVASTIN [Suspect]
     Indication: MALIGNANT PERITONEAL NEOPLASM
     Dosage: OVER 30 - 90 MINS ON DAY 1, BEGINING WITH CYCLE 2
     Route: 042
  3. PACLITAXEL [Suspect]
     Indication: MALIGNANT PERITONEAL NEOPLASM
     Dosage: OVER 3 HOURS ON DAY 1 ; TRADE NAME: TAXOL, INTRAVENOUS
     Route: 042
  4. CISPLATIN [Suspect]
     Indication: MALIGNANT PERITONEAL NEOPLASM
     Dosage: ON DAY 2, TRADE NAME: CISPLATIN
     Route: 033

REACTIONS (5)
  - DIARRHOEA [None]
  - HYPOMAGNESAEMIA [None]
  - NAUSEA [None]
  - VOMITING [None]
  - LETHARGY [None]
